FAERS Safety Report 21575509 (Version 1)
Quarter: 2022Q4

REPORT INFORMATION
  Report Type: Other
  Country: US (occurrence: None)
  Receive Date: 20221110
  Receipt Date: 20221110
  Transmission Date: 20230112
  Serious: Yes (Hospitalization)
  Sender: FDA-Public Use
  Company Number: US-ROCHE-3215677

PATIENT
  Age: 79 Year
  Sex: Male
  Weight: 61.290 kg

DRUGS (7)
  1. ACTEMRA [Suspect]
     Active Substance: TOCILIZUMAB
     Indication: Rheumatoid arthritis
     Dosage: DISPENSE: 28 DAYS, REFILLS: 2
     Route: 042
     Dates: start: 202102
  2. FOLIC ACID [Concomitant]
     Active Substance: FOLIC ACID
  3. METHOTREXATE [Concomitant]
     Active Substance: METHOTREXATE
  4. VITAMIN B11 [Concomitant]
  5. DIGOXIN [Concomitant]
     Active Substance: DIGOXIN
  6. APIXABAN [Concomitant]
     Active Substance: APIXABAN
  7. METOPROLOL SUCCINATE [Concomitant]
     Active Substance: METOPROLOL SUCCINATE

REACTIONS (1)
  - Herpes zoster oticus [Not Recovered/Not Resolved]
